FAERS Safety Report 17249669 (Version 2)
Quarter: 2020Q1

REPORT INFORMATION
  Report Type: Report from Study
  Country: US (occurrence: US)
  Receive Date: 20200108
  Receipt Date: 20200214
  Transmission Date: 20200409
  Serious: Yes (Other)
  Sender: FDA-Public Use
  Company Number: US-ROCHE-2516767

PATIENT
  Sex: Female

DRUGS (2)
  1. PULMOZYME [Suspect]
     Active Substance: DORNASE ALFA
     Indication: CHRONIC OBSTRUCTIVE PULMONARY DISEASE
  2. PULMOZYME [Suspect]
     Active Substance: DORNASE ALFA
     Indication: BRONCHIECTASIS
     Dosage: INHALE 2.5 MG (1 NEB) BY INHALATION ROUTE EVERY DAY
     Route: 055

REACTIONS (4)
  - Intentional product use issue [Unknown]
  - Fall [Unknown]
  - Pelvic fracture [Unknown]
  - Off label use [Unknown]
